FAERS Safety Report 6409037-4 (Version None)
Quarter: 2009Q4

REPORT INFORMATION
  Report Type: 
  Country: None (occurrence: None)
  Receive Date: 20091019
  Receipt Date: 20091019
  Transmission Date: 20100525
  Serious: Yes (Disabling)
  Sender: FDA-Public Use
  Company Number: None

PATIENT
  Sex: Female
  Weight: 62.5964 kg

DRUGS (1)
  1. AMITRIPTYLINE HYDROCHLORIDE [Suspect]
     Indication: SLEEP DISORDER
     Dosage: 1 TABLET 1 ORAL/ 047
     Route: 048
     Dates: start: 20090928

REACTIONS (7)
  - COLD SWEAT [None]
  - HEAD INJURY [None]
  - HYPERHIDROSIS [None]
  - LACERATION [None]
  - LOSS OF CONSCIOUSNESS [None]
  - RETCHING [None]
  - TREMOR [None]
